FAERS Safety Report 5445902-2 (Version None)
Quarter: 2007Q3

REPORT INFORMATION
  Report Type: 
  Country: None (occurrence: None)
  Receive Date: 20070731
  Receipt Date: 20061117
  Transmission Date: 20080115
  Serious: Yes (Hospitalization)
  Sender: FDA-Public Use
  Company Number: US-2006-036001

PATIENT
  Age: 48 Year
  Sex: Female
  Weight: 57 kg

DRUGS (1)
  1. MAGNEVIST [Suspect]
     Indication: NUCLEAR MAGNETIC RESONANCE IMAGING ABDOMINAL
     Dosage: 30 ML, 1 DOSE, INTRAVENOUS
     Route: 042
     Dates: start: 20061116, end: 20061116

REACTIONS (2)
  - PHARYNGOLARYNGEAL DISCOMFORT [None]
  - URTICARIA [None]
